FAERS Safety Report 23715462 (Version 1)
Quarter: 2024Q2

REPORT INFORMATION
  Report Type: Report from Study
  Country: CZ (occurrence: CZ)
  Receive Date: 20240407
  Receipt Date: 20240407
  Transmission Date: 20240716
  Serious: Yes (Death, Other)
  Sender: FDA-Public Use
  Company Number: CZ-ABBVIE-5708791

PATIENT
  Age: 76 Year
  Sex: Female

DRUGS (3)
  1. SKYRIZI [Suspect]
     Active Substance: RISANKIZUMAB-RZAA
     Indication: Psoriasis
     Dosage: 150 MG IN WEEK 0 AND IN WEEK 4, THEN EVERY 12 WEEKS
     Route: 058
     Dates: start: 20210120, end: 20231208
  2. ROSUVASTATIN [Concomitant]
     Active Substance: ROSUVASTATIN
     Indication: Product used for unknown indication
  3. METFORMIN [Concomitant]
     Active Substance: METFORMIN HYDROCHLORIDE
     Indication: Product used for unknown indication

REACTIONS (5)
  - Death [Fatal]
  - Cerebrovascular accident [Unknown]
  - Mobility decreased [Unknown]
  - General physical health deterioration [Unknown]
  - Incontinence [Unknown]

NARRATIVE: CASE EVENT DATE: 20230705
